FAERS Safety Report 10014471 (Version 1)
Quarter: 2014Q1

REPORT INFORMATION
  Report Type: Spontaneous
  Country: GB (occurrence: GB)
  Receive Date: 20140317
  Receipt Date: 20140317
  Transmission Date: 20141002
  Serious: Yes (Life-Threatening, Hospitalization, Other)
  Sender: FDA-Public Use
  Company Number: GB-JNJFOC-20140306368

PATIENT
  Age: 13 Year
  Sex: Male

DRUGS (1)
  1. IBUPROFEN [Suspect]
     Indication: NASOPHARYNGITIS
     Dosage: GIVEN STANDARD DOSE.
     Route: 048

REACTIONS (18)
  - Stevens-Johnson syndrome [Recovered/Resolved]
  - Skin exfoliation [Recovered/Resolved]
  - Lip swelling [Recovered/Resolved]
  - Consciousness fluctuating [Recovered/Resolved]
  - Lip discolouration [Recovered/Resolved]
  - Blister [Recovered/Resolved]
  - Rash generalised [Recovered/Resolved]
  - Hypersensitivity [Recovered/Resolved]
  - Dyspnoea [Recovered/Resolved]
  - Eye disorder [Recovered/Resolved]
  - Scab [Recovered/Resolved]
  - Skin disorder [Recovered/Resolved]
  - Malaise [Recovered/Resolved]
  - Weight decreased [Recovered/Resolved]
  - Pain [Recovered/Resolved]
  - Scab [Recovered/Resolved]
  - Scar [Recovered/Resolved]
  - Off label use [Recovered/Resolved]
